FAERS Safety Report 8660374 (Version 3)
Quarter: 2012Q4

REPORT INFORMATION
  Report Type: 
  Country: GB (occurrence: GB)
  Receive Date: 20120711
  Receipt Date: 20120829
  Transmission Date: 20130627
  Serious: Yes (Other)
  Sender: FDA-Public Use
  Company Number: GB-WATSON-2012-11366

PATIENT
  Sex: Male

DRUGS (1)
  1. RAMIPRIL (UNKNOWN) [Suspect]
     Indication: HYPERTENSION
     Dosage: 2.5 mg, daily
     Route: 065

REACTIONS (1)
  - Balance disorder [Recovering/Resolving]
